FAERS Safety Report 11425098 (Version 3)
Quarter: 2015Q3

REPORT INFORMATION
  Report Type: Spontaneous
  Country: CA (occurrence: CA)
  Receive Date: 20150827
  Receipt Date: 20150928
  Transmission Date: 20151125
  Serious: Yes (Hospitalization, Other)
  Sender: FDA-Public Use
  Company Number: CA-PFIZER INC-2015280566

PATIENT
  Age: 58 Year
  Sex: Male

DRUGS (15)
  1. ATIVAN [Suspect]
     Active Substance: LORAZEPAM
     Dosage: 2 MG, 2X/DAY
     Route: 060
     Dates: start: 20140328
  2. KETOCONAZOLE. [Suspect]
     Active Substance: KETOCONAZOLE
     Dosage: 2 %, UNK
     Dates: start: 20140327, end: 20140409
  3. NICOTINE. [Suspect]
     Active Substance: NICOTINE
     Dosage: NICOTINE GUM 151/103, CHEW ONE GUM EVERY HOUR AS NEEDED
     Route: 048
     Dates: start: 20140326
  4. NICOTINE. [Suspect]
     Active Substance: NICOTINE
     Dosage: 10 MG, EVERY 20MIN, AS NEEDED
     Route: 055
     Dates: start: 20140326, end: 20140326
  5. SEROQUEL [Interacting]
     Active Substance: QUETIAPINE FUMARATE
     Dosage: 300 MG, 1X/DAY
     Dates: start: 20140328, end: 20140402
  6. IMOVANE [Suspect]
     Active Substance: ZOPICLONE
     Dosage: 7.5 MG, UNK
  7. ATIVAN [Suspect]
     Active Substance: LORAZEPAM
     Indication: SLEEP DISORDER
     Dosage: 2 MG, EVERY 6 HOURS, AS NEEDED
     Route: 060
     Dates: start: 20140325, end: 20140327
  8. SEROQUEL [Interacting]
     Active Substance: QUETIAPINE FUMARATE
     Dosage: 200 MG, 1X/DAY
     Dates: start: 20140327, end: 20140327
  9. EFFEXOR XR [Interacting]
     Active Substance: VENLAFAXINE HYDROCHLORIDE
     Indication: MAJOR DEPRESSION
     Dosage: 150 MG, DAILY
     Dates: start: 20140326, end: 20140329
  10. EFFEXOR XR [Interacting]
     Active Substance: VENLAFAXINE HYDROCHLORIDE
     Indication: FLASHBACK
     Dosage: UNK
     Dates: end: 20140402
  11. SEROQUEL [Interacting]
     Active Substance: QUETIAPINE FUMARATE
     Dosage: 100 MG, 1X/DAY
     Dates: start: 20140326, end: 20140326
  12. SEROQUEL [Interacting]
     Active Substance: QUETIAPINE FUMARATE
     Dosage: 25 MG, 3X/DAY
     Dates: start: 20140331, end: 20140425
  13. EFFEXOR XR [Interacting]
     Active Substance: VENLAFAXINE HYDROCHLORIDE
     Indication: POST-TRAUMATIC STRESS DISORDER
     Dosage: 75 MG, DAILY
     Dates: start: 20140325, end: 20140325
  14. IMOVANE [Suspect]
     Active Substance: ZOPICLONE
     Indication: SLEEP DISORDER
     Dosage: 7.5 MG, 1X/DAY
     Dates: start: 20140325, end: 20140329
  15. MULTIVITAMIN /07504101/ [Concomitant]
     Active Substance: VITAMINS
     Dosage: UNK

REACTIONS (12)
  - Drug ineffective [Unknown]
  - Dizziness [Not Recovered/Not Resolved]
  - Loss of consciousness [Not Recovered/Not Resolved]
  - Jaw fracture [Not Recovered/Not Resolved]
  - Sleep disorder [Not Recovered/Not Resolved]
  - Intentional product misuse [Unknown]
  - Drug hypersensitivity [Unknown]
  - Accidental overdose [Not Recovered/Not Resolved]
  - Drug interaction [Recovered/Resolved]
  - Pain [Not Recovered/Not Resolved]
  - Nerve injury [Not Recovered/Not Resolved]
  - Lip pain [Not Recovered/Not Resolved]

NARRATIVE: CASE EVENT DATE: 2014
